FAERS Safety Report 8073328-4 (Version None)
Quarter: 2012Q1

REPORT INFORMATION
  Report Type: 
  Country: None (occurrence: None)
  Receive Date: 20120126
  Receipt Date: 20120113
  Transmission Date: 20120608
  Serious: Yes (Hospitalization)
  Sender: FDA-Public Use
  Company Number: US-ARROW GEN-2012-00617

PATIENT
  Age: 68 Year
  Sex: Male

DRUGS (3)
  1. TACROLIMUS [Suspect]
     Dosage: 2 MG, BID, DAYS 11-12 POST OP
  2. TACROLIMUS [Suspect]
     Dosage: 3 MG, DAILY, DAYS 9-10 POST OP
  3. TACROLIMUS [Suspect]
     Indication: RENAL TRANSPLANT
     Dosage: 2 MG, BID, DAYS 5-8 POST OP

REACTIONS (1)
  - THROMBOTIC MICROANGIOPATHY [None]
